FAERS Safety Report 5415503-0 (Version None)
Quarter: 2007Q3

REPORT INFORMATION
  Report Type: 
  Country: None (occurrence: None)
  Receive Date: 20070815
  Receipt Date: 20070807
  Transmission Date: 20080115
  Serious: Yes (Other)
  Sender: FDA-Public Use
  Company Number: US-ROCHE-477666

PATIENT
  Sex: Male
  Weight: 89.8 kg

DRUGS (4)
  1. ACCUTANE [Suspect]
     Indication: DRUG USE FOR UNKNOWN INDICATION
     Route: 048
     Dates: start: 20000801, end: 20001101
  2. DOXYCYCLINE [Concomitant]
     Indication: ACNE
  3. CLEOCIN T [Concomitant]
     Indication: ACNE
  4. NEURONTIN [Concomitant]
     Indication: ANXIETY

REACTIONS (6)
  - ANAL FISSURE [None]
  - CROHN'S DISEASE [None]
  - DEPRESSION [None]
  - IRRITABLE BOWEL SYNDROME [None]
  - PANIC DISORDER [None]
  - PARAESTHESIA [None]
